FAERS Safety Report 17590712 (Version 1)
Quarter: 2020Q1

REPORT INFORMATION
  Report Type: Spontaneous
  Country: US (occurrence: US)
  Receive Date: 20200325
  Receipt Date: 20200325
  Transmission Date: 20200409
  Serious: Yes (Life-Threatening)
  Sender: FDA-Public Use
  Company Number: None

PATIENT
  Age: 71 Year
  Sex: Male
  Weight: 93.89 kg

DRUGS (1)
  1. ENALAPRIL (ENALAPRIL MALEATE) [Suspect]
     Active Substance: ENALAPRIL MALEATE
     Indication: HYPERTENSION
     Route: 048
     Dates: start: 20101013, end: 20180715

REACTIONS (6)
  - Tongue coated [None]
  - Oropharyngeal pain [None]
  - Candida infection [None]
  - Productive cough [None]
  - Angioedema [None]
  - Pneumonia [None]

NARRATIVE: CASE EVENT DATE: 20180715
